FAERS Safety Report 6860384-1 (Version None)
Quarter: 2010Q3

REPORT INFORMATION
  Report Type: 
  Country: None (occurrence: None)
  Receive Date: 20100720
  Receipt Date: 20100713
  Transmission Date: 20110219
  Serious: Yes (Death, Other)
  Sender: FDA-Public Use
  Company Number: US-CELGENEUS-163-21880-10070992

PATIENT
  Sex: Male
  Weight: 69.6 kg

DRUGS (3)
  1. REVLIMID [Suspect]
     Indication: HEAD AND NECK CANCER
     Route: 048
     Dates: start: 20100501, end: 20100702
  2. REVLIMID [Suspect]
     Route: 048
     Dates: start: 20100312, end: 20100501
  3. CETUXIMAB [Suspect]
     Indication: METASTASES TO LUNG
     Route: 051
     Dates: start: 20100312, end: 20100625

REACTIONS (2)
  - EPISTAXIS [None]
  - HAEMORRHAGE [None]
